FAERS Safety Report 9034730 (Version 2)
Quarter: 2013Q1

REPORT INFORMATION
  Report Type: Spontaneous
  Country: GB (occurrence: None)
  Receive Date: 20130111
  Receipt Date: 20130123
  Transmission Date: 20140127
  Serious: Yes (Other)
  Sender: FDA-Public Use
  Company Number: THQ2013A00011

PATIENT
  Age: 54 Year
  Sex: Female

DRUGS (2)
  1. LANSOPRAZOLE [Suspect]
     Indication: REFLUX GASTRITIS
  2. VESICARE [Suspect]
     Indication: PRODUCT USED FOR UNKNOWN INDICATION
     Dates: start: 20121114

REACTIONS (6)
  - Drug interaction [None]
  - Malaise [None]
  - Circulatory collapse [None]
  - Fall [None]
  - Disorientation [None]
  - Dizziness [None]
